FAERS Safety Report 8183793-X (Version None)
Quarter: 2012Q1

REPORT INFORMATION
  Report Type: 
  Country: None (occurrence: None)
  Receive Date: 20120305
  Receipt Date: 20120301
  Transmission Date: 20120608
  Serious: Yes (Hospitalization)
  Sender: FDA-Public Use
  Company Number: PHEH2011US05180

PATIENT
  Sex: Female
  Weight: 43.084 kg

DRUGS (2)
  1. EXJADE [Suspect]
     Indication: IRON OVERLOAD
     Dosage: 500 MG, DAILY
     Route: 048
     Dates: start: 20090817
  2. EXJADE [Suspect]
     Indication: MYELODYSPLASTIC SYNDROME
     Dosage: 125 MG, Q6H
     Route: 048
     Dates: start: 20090924

REACTIONS (3)
  - HALLUCINATION [None]
  - INSOMNIA [None]
  - PNEUMONIA [None]
